FAERS Safety Report 13137819 (Version 1)
Quarter: 2017Q1

REPORT INFORMATION
  Report Type: Other
  Country: US (occurrence: US)
  Receive Date: 20170123
  Receipt Date: 20170123
  Transmission Date: 20170428
  Serious: No
  Sender: FDA-Public Use
  Company Number: US-UNITED THERAPEUTICS-UNT-2015-012250

PATIENT
  Sex: Female
  Weight: 53.61 kg

DRUGS (1)
  1. REMODULIN [Suspect]
     Active Substance: TREPROSTINIL
     Indication: PULMONARY HYPERTENSION
     Dosage: 0.026 ?G/KG/MIN, CONTINUING
     Route: 058
     Dates: start: 20111128

REACTIONS (1)
  - Rash generalised [Unknown]
